FAERS Safety Report 10359325 (Version 1)
Quarter: 2014Q3

REPORT INFORMATION
  Report Type: Spontaneous
  Country: US (occurrence: None)
  Receive Date: 20140731
  Receipt Date: 20140731
  Transmission Date: 20150326
  Serious: Yes (Other)
  Sender: FDA-Public Use
  Company Number: None

PATIENT
  Age: 19 Year
  Sex: Female
  Weight: 63.5 kg

DRUGS (1)
  1. METHOTREXATE [Suspect]
     Active Substance: METHOTREXATE
     Indication: ACUTE LYMPHOCYTIC LEUKAEMIA
     Dates: start: 20140709, end: 20140711

REACTIONS (6)
  - Posturing [None]
  - Hemiparesis [None]
  - White matter lesion [None]
  - Cerebrovascular accident [None]
  - Platelet count decreased [None]
  - Neurotoxicity [None]

NARRATIVE: CASE EVENT DATE: 20140709
